FAERS Safety Report 8192076-3 (Version None)
Quarter: 2012Q1

REPORT INFORMATION
  Report Type: 
  Country: None (occurrence: None)
  Receive Date: 20120307
  Receipt Date: 20120227
  Transmission Date: 20120608
  Serious: Yes (Other)
  Sender: FDA-Public Use
  Company Number: US-ASTRAZENECA-2011SE77003

PATIENT
  Age: 62 Year
  Sex: Female

DRUGS (5)
  1. OMEPRAZOLE [Concomitant]
     Route: 048
  2. LASIX [Concomitant]
  3. TOPROL-XL [Suspect]
     Route: 048
  4. CRESTOR [Suspect]
     Route: 048
  5. STEROIDS [Suspect]
     Route: 065

REACTIONS (2)
  - MYOCARDIAL INFARCTION [None]
  - CARDIAC DISORDER [None]
